FAERS Safety Report 9115788 (Version 1)
Quarter: 2013Q1

REPORT INFORMATION
  Report Type: Report from Study
  Country: DE (occurrence: DE)
  Receive Date: 20130224
  Receipt Date: 20130224
  Transmission Date: 20140127
  Serious: No
  Sender: FDA-Public Use
  Company Number: PHHY2012DE079131

PATIENT
  Sex: Female

DRUGS (10)
  1. AMN107 [Suspect]
     Indication: CHRONIC MYELOID LEUKAEMIA
     Dosage: 600 MG, DAILY
     Route: 048
     Dates: start: 20120418
  2. OMEPRAZOLE [Concomitant]
     Dosage: 40 MG,
     Dates: start: 20120320, end: 20120411
  3. PANTOPRAZOLE [Concomitant]
     Dosage: 80 MG,
     Dates: start: 20120412, end: 201205
  4. MICROGYNON [Concomitant]
     Dosage: 0.03 MG,
     Dates: start: 200602
  5. MICROGYNON [Concomitant]
     Dosage: 0.15 MG,
  6. CIPROFLOXACIN LACTATE [Concomitant]
     Dosage: 500 MG,
     Dates: start: 20120920, end: 20120927
  7. DIMETINDENE MALEATE [Concomitant]
     Dates: start: 20121017, end: 20121029
  8. MIRTAZAPIN [Concomitant]
     Dosage: 15 MG,
     Dates: start: 20121029, end: 20121030
  9. DESLORATADINE [Concomitant]
     Dosage: 5 MG,
     Dates: start: 20121029, end: 20121112
  10. DESLORATADINE [Concomitant]
     Dosage: 2.5 MG,
     Dates: start: 20121112

REACTIONS (2)
  - Amylase increased [Recovered/Resolved]
  - Lipase increased [Unknown]
